FAERS Safety Report 8371153-8 (Version None)
Quarter: 2012Q2

REPORT INFORMATION
  Report Type: 
  Country: None (occurrence: None)
  Receive Date: 20120518
  Receipt Date: 20120504
  Transmission Date: 20120825
  Serious: Yes (Life-Threatening, Hospitalization, Congenital Anomaly)
  Sender: FDA-Public Use
  Company Number: DE-ARROW GEN-2012-07796

PATIENT
  Sex: Female
  Weight: 0.82 kg

DRUGS (3)
  1. SERTRALINE HYDROCHLORIDE [Suspect]
     Indication: DEPRESSION
     Dosage: ^150 [MG/D ]/ UNTIL 16.8.11 100 MG/D, 150 MG/D UNTIL DELIVERY^
     Route: 064
     Dates: start: 20110331, end: 20110930
  2. FOLIC ACID [Concomitant]
     Indication: PROPHYLAXIS OF NEURAL TUBE DEFECT
     Dosage: +PRECON
     Route: 064
     Dates: start: 20110331, end: 20110930
  3. BETAMETHASONE [Concomitant]
     Indication: MATERNAL THERAPY TO ENHANCE FOETAL LUNG MATURITY
     Dosage: 12 [MG/D ]
     Route: 064
     Dates: start: 20110930, end: 20110930

REACTIONS (3)
  - PREMATURE BABY [None]
  - PATENT DUCTUS ARTERIOSUS [None]
  - VENTRICULAR SEPTAL DEFECT [None]
